FAERS Safety Report 20650135 (Version 2)
Quarter: 2022Q3

REPORT INFORMATION
  Report Type: Spontaneous
  Country: US (occurrence: US)
  Receive Date: 20220329
  Receipt Date: 20220706
  Transmission Date: 20221026
  Serious: No
  Sender: FDA-Public Use
  Company Number: US-AVEO ONCOLOGY-2022-AVEO-US000021

PATIENT

DRUGS (6)
  1. FOTIVDA [Suspect]
     Active Substance: TIVOZANIB HYDROCHLORIDE
     Indication: Renal cell carcinoma
     Dosage: 1.34 MG, DAILY ON DAYS 1-21 EVERY 28 DAYS
     Route: 048
     Dates: start: 20220107
  2. HYDROCORTISONE [Concomitant]
     Active Substance: HYDROCORTISONE
  3. LIPITOR [Concomitant]
     Active Substance: ATORVASTATIN CALCIUM
  4. XGEVA [Concomitant]
     Active Substance: DENOSUMAB
  5. CRANBERRY [Concomitant]
     Active Substance: CRANBERRY
  6. CALCIUM CARBONATE\VITAMIN D [Concomitant]
     Active Substance: CALCIUM CARBONATE\VITAMIN D

REACTIONS (10)
  - Diarrhoea [Unknown]
  - Weight decreased [Unknown]
  - Nausea [Unknown]
  - Vomiting [Unknown]
  - Glossodynia [Unknown]
  - Blood potassium decreased [Unknown]
  - Muscle spasms [Unknown]
  - Peripheral swelling [Recovering/Resolving]
  - Paraesthesia [Unknown]
  - Faeces soft [Unknown]
